FAERS Safety Report 5373212-0 (Version None)
Quarter: 2007Q2

REPORT INFORMATION
  Report Type: 
  Country: None (occurrence: None)
  Receive Date: 20070628
  Receipt Date: 20070621
  Transmission Date: 20071010
  Serious: Yes (Other)
  Sender: FDA-Public Use
  Company Number: PHBS2007BR09974

PATIENT
  Age: 11 Year
  Sex: Male
  Weight: 50 kg

DRUGS (2)
  1. TEGRETOL [Suspect]
     Dosage: 200MG QD
     Route: 048
  2. TEGRETOL [Suspect]
     Dosage: 200 MG, BID
     Route: 048

REACTIONS (5)
  - BLOOD TRIGLYCERIDES INCREASED [None]
  - DIARRHOEA [None]
  - FATIGUE [None]
  - LAZINESS [None]
  - POLLAKIURIA [None]
